FAERS Safety Report 11216928 (Version 1)
Quarter: 2015Q2

REPORT INFORMATION
  Report Type: Spontaneous
  Country: US (occurrence: None)
  Receive Date: 20150623
  Receipt Date: 20150623
  Transmission Date: 20150821
  Serious: Yes (Hospitalization)
  Sender: FDA-Public Use
  Company Number: None

PATIENT
  Age: 29 Year
  Sex: Female
  Weight: 54.43 kg

DRUGS (4)
  1. PRE-NATAL VITAMIN [Concomitant]
  2. MIRENA [Suspect]
     Active Substance: LEVONORGESTREL
  3. SYNTHROID [Concomitant]
     Active Substance: LEVOTHYROXINE SODIUM
  4. FISH OILS [Concomitant]

REACTIONS (4)
  - Uterine perforation [None]
  - Pain [None]
  - Infection [None]
  - Vomiting [None]

NARRATIVE: CASE EVENT DATE: 20150613
